FAERS Safety Report 11789743 (Version 1)
Quarter: 2015Q4

REPORT INFORMATION
  Report Type: Spontaneous
  Country: US (occurrence: None)
  Receive Date: 20151130
  Receipt Date: 20151130
  Transmission Date: 20160305
  Serious: Yes (Hospitalization)
  Sender: FDA-Public Use
  Company Number: None

PATIENT
  Age: 68 Year
  Sex: Male

DRUGS (20)
  1. ACTHAR [Suspect]
     Active Substance: CORTICOTROPIN
     Indication: SARCOIDOSIS
     Dosage: BLINDED TWICE WEEKLY SUBCUTANEOUS INJECTION
     Route: 058
     Dates: start: 20150731, end: 20151116
  2. FINASTERIDE. [Concomitant]
     Active Substance: FINASTERIDE
  3. COUMADIN [Concomitant]
     Active Substance: WARFARIN SODIUM
  4. ZOLOFT [Concomitant]
     Active Substance: SERTRALINE HYDROCHLORIDE
  5. CARVEDILOL. [Concomitant]
     Active Substance: CARVEDILOL
  6. CINNAMON. [Concomitant]
     Active Substance: CINNAMON
  7. MAGNESIUM [Concomitant]
     Active Substance: MAGNESIUM
  8. SEPTRA [Concomitant]
     Active Substance: SULFAMETHOXAZOLE\TRIMETHOPRIM
  9. VORIONAZOLE [Concomitant]
  10. MEGA RED KRILL [Concomitant]
  11. PREDNISONE. [Suspect]
     Active Substance: PREDNISONE
  12. CHLORTHALIDONE. [Concomitant]
     Active Substance: CHLORTHALIDONE
  13. DILTIZEM [Concomitant]
  14. OMEPRAZOLE. [Concomitant]
     Active Substance: OMEPRAZOLE
  15. ROUVASTATIN [Concomitant]
  16. VITAMIN B [Concomitant]
     Active Substance: VITAMIN B
  17. SPIRALACTONE [Concomitant]
  18. POTASSIUM CHLORIDE. [Concomitant]
     Active Substance: POTASSIUM CHLORIDE
  19. MULTIVITAMIN [Concomitant]
     Active Substance: VITAMINS
  20. COQ10 [Concomitant]
     Active Substance: UBIDECARENONE

REACTIONS (5)
  - Peripheral swelling [None]
  - Arthralgia [None]
  - Malignant hypertension [None]
  - Joint swelling [None]
  - Gastrointestinal haemorrhage [None]

NARRATIVE: CASE EVENT DATE: 20151120
